FAERS Safety Report 18729572 (Version 1)
Quarter: 2021Q1

REPORT INFORMATION
  Report Type: Spontaneous
  Country: IT (occurrence: IT)
  Receive Date: 20210112
  Receipt Date: 20210112
  Transmission Date: 20210419
  Serious: Yes (Death, Hospitalization)
  Sender: FDA-Public Use
  Company Number: IT-MYLANLABS-2021M1000424

PATIENT
  Age: 19 Year
  Sex: Male

DRUGS (1)
  1. PREDNISONE. [Suspect]
     Active Substance: PREDNISONE
     Indication: CLUSTER HEADACHE
     Dosage: 75 MILLIGRAM, QD CHRONIC GLUCOCORTICOID THERAPY
     Route: 048

REACTIONS (9)
  - Multiple organ dysfunction syndrome [Fatal]
  - Opportunistic infection [Fatal]
  - Septic shock [Fatal]
  - Cytomegalovirus infection [Fatal]
  - Bone marrow failure [Fatal]
  - Cushing^s syndrome [Fatal]
  - Off label use [Unknown]
  - Acute respiratory distress syndrome [Fatal]
  - Acute kidney injury [Fatal]
